FAERS Safety Report 6031575-7 (Version None)
Quarter: 2008Q4

REPORT INFORMATION
  Report Type: 
  Country: None (occurrence: None)
  Receive Date: 20081229
  Receipt Date: 20080102
  Transmission Date: 20090506
  Serious: Yes (Life-Threatening, Hospitalization)
  Sender: FDA-Public Use
  Company Number: 162393USA

PATIENT
  Age: 77 Year
  Sex: Female
  Weight: 71.2147 kg

DRUGS (11)
  1. CLOZAPINE [Suspect]
     Indication: DELUSION
     Dosage: (100 MG),ORAL
     Route: 048
     Dates: start: 20070827, end: 20070919
  2. CLOZAPINE [Suspect]
     Indication: PARANOIA
     Dosage: (100 MG),ORAL
     Route: 048
     Dates: start: 20070827, end: 20070919
  3. CLOZAPINE [Suspect]
     Indication: PSYCHOTIC DISORDER
     Dosage: (100 MG),ORAL
     Route: 048
     Dates: start: 20070827, end: 20070919
  4. METOPROLOL TARTRATE [Concomitant]
  5. PERPHENAZINE [Concomitant]
  6. AMITIZA [Concomitant]
  7. ACETYLSALICYLIC ACID SRT [Concomitant]
  8. VENLAFAXINE HYDROCHLORIDE [Concomitant]
  9. DIPHENHYDRAMINE HYDROCHLORIDE [Concomitant]
  10. DOCUSATE SODIUM [Concomitant]
  11. LEVOFLOXACIN [Concomitant]

REACTIONS (2)
  - DEEP VEIN THROMBOSIS [None]
  - PULMONARY EMBOLISM [None]
